FAERS Safety Report 24842178 (Version 1)
Quarter: 2025Q1

REPORT INFORMATION
  Report Type: Spontaneous
  Country: US (occurrence: US)
  Receive Date: 20250115
  Receipt Date: 20250115
  Transmission Date: 20250409
  Serious: No
  Sender: SANOFI AVENTIS
  Company Number: US-SA-2025SA011179

PATIENT
  Age: 41 Year
  Sex: Female
  Weight: 65.91 kg

DRUGS (3)
  1. KEVZARA [Suspect]
     Active Substance: SARILUMAB
     Indication: Rheumatoid arthritis
     Dosage: 200 MG, QOW
     Route: 058
     Dates: start: 20240906
  2. SULFASALAZINE [Concomitant]
     Active Substance: SULFASALAZINE
  3. HYDROXYCHLOROQUINE SULFATE [Concomitant]
     Active Substance: HYDROXYCHLOROQUINE SULFATE

REACTIONS (2)
  - Drug hypersensitivity [Unknown]
  - Urticaria [Unknown]

NARRATIVE: CASE EVENT DATE: 20240101
